FAERS Safety Report 8817394 (Version 1)
Quarter: 2012Q4

REPORT INFORMATION
  Report Type: 
  Country: US (occurrence: US)
  Receive Date: 20121004
  Receipt Date: 20121004
  Transmission Date: 20130627
  Serious: Yes (Other)
  Sender: FDA-Public Use
  Company Number: US-PFIZER INC-2012241710

PATIENT
  Age: 63 Year
  Sex: Male
  Weight: 103 kg

DRUGS (16)
  1. VIAGRA [Suspect]
     Indication: ERECTILE DYSFUNCTION
     Dosage: 100 mg, as needed
     Route: 048
  2. CLONAZEPAM [Interacting]
     Indication: DEPRESSION
     Dosage: 2 mg, 1x/day at night
  3. CLONAZEPAM [Interacting]
     Indication: ANXIETY
  4. VENLAFAXINE [Interacting]
     Indication: DEPRESSION
     Dosage: 100 mg, 3x/day
  5. VENLAFAXINE [Interacting]
     Indication: ANXIETY
  6. DOXAZOSIN MESYLATE [Suspect]
     Indication: PROSTATIC DISORDER
     Dosage: 4 mg, 1x/day at night
  7. LEVOTHYROXINE SODIUM [Concomitant]
     Indication: THYROID DISORDER
     Dosage: 100 ug, 1x/day
  8. POMEGRANATE [Concomitant]
     Indication: CARDIAC DISORDER
     Dosage: 2 DF, 1x/day
  9. MAGNESIUM/ZINC [Concomitant]
     Dosage: 3 tablets daily
  10. SAW PALMETTO [Concomitant]
     Indication: PROSTATIC DISORDER
     Dosage: 400mg four tablets daily
  11. CENTRUM SILVER MEN 50+ [Concomitant]
     Indication: SUPPLEMENTATION THERAPY
     Dosage: 1x/day
  12. ASPIRIN [Concomitant]
     Dosage: 1x/day
  13. CALCIUM WITH VITAMIN D [Concomitant]
     Dosage: 1200 mg, daily
  14. FISH OIL [Concomitant]
     Dosage: 1290 mg, UNK
  15. OMEGA-3 [Concomitant]
     Indication: SUPPLEMENTATION THERAPY
     Dosage: 900 mg, UNK
  16. MELATONIN [Concomitant]
     Indication: PROSTATIC DISORDER
     Dosage: 20 mg, 1x/day at bedtime

REACTIONS (6)
  - Gallbladder disorder [Unknown]
  - Appendix disorder [Unknown]
  - Large intestine polyp [Unknown]
  - Hypotension [Unknown]
  - Drug interaction [Unknown]
  - Drug ineffective [Unknown]
